FAERS Safety Report 6638473-6 (Version None)
Quarter: 2010Q1

REPORT INFORMATION
  Report Type: 
  Country: None (occurrence: None)
  Receive Date: 20100317
  Receipt Date: 20100312
  Transmission Date: 20100710
  Serious: Yes (Other)
  Sender: FDA-Public Use
  Company Number: CA-MERCK-1003USA01887

PATIENT
  Sex: Male

DRUGS (1)
  1. PROPECIA [Suspect]
     Route: 048

REACTIONS (13)
  - DEPRESSION [None]
  - DISTURBANCE IN ATTENTION [None]
  - DRY EYE [None]
  - DRY SKIN [None]
  - EYE INFLAMMATION [None]
  - EYE IRRITATION [None]
  - FATIGUE [None]
  - MOOD ALTERED [None]
  - PHOTOPHOBIA [None]
  - SEMEN VISCOSITY DECREASED [None]
  - SKIN ATROPHY [None]
  - VISUAL IMPAIRMENT [None]
  - VITREOUS FLOATERS [None]
